FAERS Safety Report 4489530-4 (Version None)
Quarter: 2004Q4

REPORT INFORMATION
  Report Type: 
  Country: None (occurrence: None)
  Receive Date: 20041026
  Receipt Date: 20041012
  Transmission Date: 20050328
  Serious: Yes (Other)
  Sender: FDA-Public Use
  Company Number: 2004235873FR

PATIENT
  Age: 65 Year
  Sex: Female
  Weight: 100 kg

DRUGS (6)
  1. CELEBREX [Suspect]
     Indication: LOCALISED OSTEOARTHRITIS
     Dosage: 200 MG, QD, ORAL
     Route: 048
     Dates: start: 20040201
  2. EFFEXOR [Suspect]
     Indication: DEPRESSION
     Dosage: 37.5 MG, QD
  3. DIASTABOL [Concomitant]
  4. GLYBURIDE [Concomitant]
  5. HYZAAR [Concomitant]
  6. CAPTOPRIL [Concomitant]

REACTIONS (5)
  - ANTINUCLEAR ANTIBODY POSITIVE [None]
  - DEHYDRATION [None]
  - EOSINOPHILIA [None]
  - PLATELET COUNT DECREASED [None]
  - RHABDOMYOLYSIS [None]
